FAERS Safety Report 9676367 (Version 2)
Quarter: 2013Q4

REPORT INFORMATION
  Report Type: Report from Study
  Country: DE (occurrence: DE)
  Receive Date: 20131107
  Receipt Date: 20131211
  Transmission Date: 20140711
  Serious: Yes (Other)
  Sender: FDA-Public Use
  Company Number: DE-PFIZER INC-2013313374

PATIENT
  Age: 65 Year
  Sex: Female

DRUGS (1)
  1. SUNITINIB MALATE [Suspect]
     Indication: OVARIAN CANCER
     Dosage: 50 MG, 1X/DAY
     Dates: start: 200712, end: 201204

REACTIONS (1)
  - Escherichia sepsis [Unknown]
